FAERS Safety Report 8486992-2 (Version None)
Quarter: 2012Q3

REPORT INFORMATION
  Report Type: 
  Country: None (occurrence: None)
  Receive Date: 20120704
  Receipt Date: 20120628
  Transmission Date: 20120928
  Serious: Yes (Other)
  Sender: FDA-Public Use
  Company Number: PHEH2012US012808

PATIENT

DRUGS (1)
  1. RECLAST [Suspect]
     Route: 042

REACTIONS (4)
  - HEADACHE [None]
  - DYSPNOEA [None]
  - LUNG DISORDER [None]
  - PAIN [None]
